FAERS Safety Report 7766323-3 (Version None)
Quarter: 2011Q3

REPORT INFORMATION
  Report Type: 
  Country: None (occurrence: None)
  Receive Date: 20110922
  Receipt Date: 20110912
  Transmission Date: 20111222
  Serious: No
  Sender: FDA-Public Use
  Company Number: US-BIOGENIDEC-2011BI001480

PATIENT
  Sex: Female

DRUGS (4)
  1. PROZAC [Concomitant]
  2. CLONAZEPAM [Concomitant]
  3. AVONEX [Concomitant]
     Indication: MULTIPLE SCLEROSIS
     Route: 030
  4. TYSABRI [Suspect]
     Indication: MULTIPLE SCLEROSIS
     Route: 042
     Dates: start: 20070622, end: 20101019

REACTIONS (14)
  - PARALYSIS [None]
  - SKIN DISORDER [None]
  - GENERAL PHYSICAL HEALTH DETERIORATION [None]
  - COLD SWEAT [None]
  - TERMINAL STATE [None]
  - HYPOTENSION [None]
  - BLADDER SPASM [None]
  - PAIN [None]
  - CHILLS [None]
  - MUSCLE SPASMS [None]
  - DECUBITUS ULCER [None]
  - BLOOD PRESSURE DECREASED [None]
  - CONFUSIONAL STATE [None]
  - GENERAL SYMPTOM [None]
